FAERS Safety Report 8093794-8 (Version None)
Quarter: 2012Q1

REPORT INFORMATION
  Report Type: 
  Country: None (occurrence: None)
  Receive Date: 20120129
  Receipt Date: 20110930
  Transmission Date: 20120608
  Serious: No
  Sender: FDA-Public Use
  Company Number: US-ABBOTT-11P-163-0859997-00

PATIENT
  Age: 16 Year
  Sex: Female

DRUGS (9)
  1. HUMIRA [Suspect]
     Dates: start: 20110601
  2. URSODIOL [Concomitant]
     Indication: CHOLANGITIS SCLEROSING
     Dosage: 1 PILL 2 X PER DAY
  3. STEROID EYE DROPS [Concomitant]
     Indication: EYE DISORDER
  4. FISH OIL [Concomitant]
     Indication: PRODUCT USED FOR UNKNOWN INDICATION
  5. VITAMIN D [Concomitant]
     Indication: PRODUCT USED FOR UNKNOWN INDICATION
  6. MULTI-VITAMIN [Concomitant]
     Indication: PRODUCT USED FOR UNKNOWN INDICATION
  7. CALCIUM [Concomitant]
     Indication: PRODUCT USED FOR UNKNOWN INDICATION
  8. HUMIRA [Suspect]
     Indication: CROHN'S DISEASE
  9. POTASSIUM CHLORIDE [Concomitant]
     Indication: NEPHROLITHIASIS
     Dosage: 3 X PER DAY

REACTIONS (10)
  - INJECTION SITE PAIN [None]
  - AUTOIMMUNE DISORDER [None]
  - INJECTION SITE ERYTHEMA [None]
  - DEVICE MALFUNCTION [None]
  - VISION BLURRED [None]
  - PHOTOPHOBIA [None]
  - INCORRECT DOSE ADMINISTERED [None]
  - OCULAR HYPERAEMIA [None]
  - INJECTION SITE HAEMORRHAGE [None]
  - KERATITIS [None]
